FAERS Safety Report 21142027 (Version 1)
Quarter: 2022Q3

REPORT INFORMATION
  Report Type: Spontaneous
  Country: US (occurrence: None)
  Receive Date: 20220727
  Receipt Date: 20220727
  Transmission Date: 20221026
  Serious: Yes (Other)
  Sender: FDA-Public Use
  Company Number: None

PATIENT
  Sex: 0

DRUGS (2)
  1. ONDANSETRON [Suspect]
     Active Substance: ONDANSETRON
     Indication: Pain
  2. ONDANSETRON [Suspect]
     Active Substance: ONDANSETRON
     Indication: Insomnia

REACTIONS (4)
  - Pain [None]
  - Insomnia [None]
  - Muscle disorder [None]
  - Nervous system disorder [None]
